FAERS Safety Report 8182062 (Version 4)
Quarter: 2013Q3

REPORT INFORMATION
  Report Type: Report from Study
  Country: JP (occurrence: JP)
  Receive Date: 20111014
  Receipt Date: 20130814
  Transmission Date: 20140515
  Serious: Yes (Hospitalization, Disabling, Other)
  Sender: FDA-Public Use
  Company Number: PHHY2010JP14371

PATIENT
  Age: 61 Year
  Sex: Female

DRUGS (12)
  1. AMN107 [Suspect]
     Indication: CHRONIC MYELOID LEUKAEMIA
     Dosage: 800 MG, DAILY
     Route: 048
     Dates: start: 20090515, end: 20130117
  2. AMN107 [Suspect]
     Dosage: 600 MG, DAILY
     Route: 048
     Dates: start: 20130118
  3. BLOPRESS [Concomitant]
     Dosage: 2 MG, DAILY
     Route: 048
     Dates: start: 20090411
  4. AMLODIN [Concomitant]
     Dosage: 2.5 MG, DAILY
     Route: 048
     Dates: start: 20090411
  5. THEODUR [Concomitant]
     Dosage: 400 MG, DAILY
     Route: 048
     Dates: start: 20090411
  6. PREDONINE [Concomitant]
     Dosage: 10 MG, DAILY
     Route: 048
     Dates: start: 20090411, end: 20090519
  7. ALOSITOL [Concomitant]
     Indication: HYPERURICAEMIA
     Dosage: 100 MG, DAILY
     Route: 048
     Dates: start: 20090430
  8. ADVAIR [Concomitant]
     Indication: ASTHMA
     Dosage: 2 DF, DAILY
     Dates: start: 20100217
  9. PLAVIX [Concomitant]
     Dosage: 25 MG
     Route: 048
     Dates: start: 20111021
  10. PLETAAL [Concomitant]
     Dosage: 200 MG
     Route: 048
     Dates: start: 20111021
  11. EXCEGRAN [Concomitant]
     Dosage: 200 MG
     Route: 048
     Dates: start: 20111021
  12. LIPITOR [Concomitant]
     Dosage: 10 MG
     Route: 048
     Dates: start: 20111021

REACTIONS (4)
  - Diabetes mellitus [Recovering/Resolving]
  - Hepatic function abnormal [Recovered/Resolved]
  - Alanine aminotransferase increased [Unknown]
  - Eosinophil count increased [Recovered/Resolved]
